FAERS Safety Report 9305257 (Version 1)
Quarter: 2013Q2

REPORT INFORMATION
  Report Type: Spontaneous
  Country: US (occurrence: None)
  Receive Date: 20130522
  Receipt Date: 20130522
  Transmission Date: 20140414
  Serious: Yes (Hospitalization)
  Sender: FDA-Public Use
  Company Number: None

PATIENT
  Age: 63 Year
  Sex: Male
  Weight: 82.3 kg

DRUGS (1)
  1. FUROSEMIDE [Suspect]
     Route: 048
     Dates: start: 20110901

REACTIONS (4)
  - Hypokalaemia [None]
  - Hypomagnesaemia [None]
  - Ventricular tachycardia [None]
  - Cardiac arrest [None]
